FAERS Safety Report 10249343 (Version 1)
Quarter: 2014Q2

REPORT INFORMATION
  Report Type: Spontaneous
  Country: NL (occurrence: NL)
  Receive Date: 20140620
  Receipt Date: 20140620
  Transmission Date: 20141212
  Serious: Yes (Other)
  Sender: FDA-Public Use
  Company Number: NL-PFIZER INC-2014163404

PATIENT
  Age: 42 Year
  Sex: Female
  Weight: 70 kg

DRUGS (2)
  1. ETHINYLESTRADIOL/LEVONORGESTREL [Suspect]
     Dosage: 1 DF, CYCLIC
     Dates: start: 2000
  2. PENTASA - SLOW RELEASE [Concomitant]
     Dosage: 2 G, 2X/DAY
     Dates: start: 2000, end: 2014

REACTIONS (3)
  - Therapeutic response changed [Unknown]
  - Colitis ulcerative [Recovered/Resolved]
  - Withdrawal syndrome [Recovered/Resolved]
